FAERS Safety Report 10555307 (Version 5)
Quarter: 2018Q1

REPORT INFORMATION
  Report Type: Spontaneous
  Country: JP (occurrence: JP)
  Receive Date: 20141030
  Receipt Date: 20180206
  Transmission Date: 20180508
  Serious: Yes (Hospitalization, Other)
  Sender: FDA-Public Use
  Company Number: JP-BAYER-2014-158280

PATIENT
  Age: 64 Year
  Sex: Male

DRUGS (13)
  1. TAKEPRON [Concomitant]
     Active Substance: LANSOPRAZOLE
  2. AMOXICILLIN AND CLAVULANATE POTASSIUM [Suspect]
     Active Substance: AMOXICILLIN\CLAVULANATE POTASSIUM
     Indication: CELLULITIS
     Dosage: UNK
     Route: 048
  3. LIPITOR [Concomitant]
     Active Substance: ATORVASTATIN CALCIUM
     Route: 048
  4. ARTIST [Concomitant]
     Active Substance: CARVEDILOL
     Route: 048
  5. WARFARIN [Suspect]
     Active Substance: WARFARIN
     Dosage: 4.5 MG, DAILY
     Route: 048
  6. LUPRAC [Concomitant]
     Active Substance: TORSEMIDE
     Route: 048
  7. TANATRIL [Concomitant]
     Active Substance: IMIDAPRIL
     Route: 048
  8. BAYASPIRIN 100 MG [Suspect]
     Active Substance: ASPIRIN
     Indication: PERCUTANEOUS CORONARY INTERVENTION
  9. ALDACTONE A [Concomitant]
     Active Substance: SPIRONOLACTONE
     Route: 048
  10. FEBUXOSTAT. [Concomitant]
     Active Substance: FEBUXOSTAT
     Route: 048
  11. TRAZENTA [Concomitant]
     Active Substance: LINAGLIPTIN
     Route: 048
  12. BAYASPIRIN 100 MG [Suspect]
     Active Substance: ASPIRIN
     Indication: ATRIAL FIBRILLATION
     Dosage: 100 MG, QD
     Route: 048
  13. DIART [Concomitant]
     Active Substance: AZOSEMIDE
     Route: 048

REACTIONS (10)
  - Haemorrhage subcutaneous [Recovered/Resolved]
  - Subcutaneous haematoma [Recovering/Resolving]
  - Haemoglobin decreased [None]
  - International normalised ratio increased [Recovered/Resolved]
  - Cellulitis [Recovered/Resolved]
  - Pharyngeal haematoma [Recovered/Resolved]
  - Labelled drug-drug interaction medication error [None]
  - Laryngeal haematoma [Recovered/Resolved]
  - Pharyngitis [Recovered/Resolved]
  - Drug administration error [None]

NARRATIVE: CASE EVENT DATE: 201404
